FAERS Safety Report 6676342-6 (Version None)
Quarter: 2010Q2

REPORT INFORMATION
  Report Type: 
  Country: None (occurrence: None)
  Receive Date: 20100412
  Receipt Date: 20100401
  Transmission Date: 20101027
  Serious: Yes (Other)
  Sender: FDA-Public Use
  Company Number: CA-JNJFOC-20100401106

PATIENT
  Sex: Female
  Weight: 82 kg

DRUGS (1)
  1. REMICADE [Suspect]
     Indication: RHEUMATOID ARTHRITIS
     Route: 042

REACTIONS (2)
  - BONE DENSITY DECREASED [None]
  - FOOT FRACTURE [None]
